FAERS Safety Report 5960057-3 (Version None)
Quarter: 2008Q4

REPORT INFORMATION
  Report Type: 
  Country: None (occurrence: None)
  Receive Date: 20081120
  Receipt Date: 20081118
  Transmission Date: 20090506
  Serious: Yes (Life-Threatening, Hospitalization)
  Sender: FDA-Public Use
  Company Number: US-BRISTOL-MYERS SQUIBB COMPANY-14411318

PATIENT
  Age: 61 Year
  Sex: Male
  Weight: 50 kg

DRUGS (16)
  1. CISPLATIN [Suspect]
     Indication: HEAD AND NECK CANCER
     Dosage: CYCLE 1: 29-MAY-2008
     Route: 042
     Dates: start: 20080619, end: 20080619
  2. BLINDED: PEMETREXED DISODIUM [Suspect]
     Indication: HEAD AND NECK CANCER
     Dosage: CYCLE 1: 29-MAY-2008
     Route: 042
     Dates: start: 20080619, end: 20080619
  3. BLINDED: PLACEBO [Suspect]
     Indication: HEAD AND NECK CANCER
     Dosage: CYCLE 1: 29-MAY-2008
     Route: 042
     Dates: start: 20080619, end: 20080619
  4. FOLIC ACID [Concomitant]
  5. VITAMIN B-12 [Concomitant]
     Dates: start: 20080521
  6. DEXAMETHASONE [Concomitant]
     Dates: start: 20080618
  7. AMLODIPINE [Concomitant]
  8. LORAZEPAM [Concomitant]
     Dates: start: 20080606
  9. PROCHLORPERAZINE [Concomitant]
     Dates: start: 20080604
  10. FENTANYL [Concomitant]
     Dates: start: 20080529
  11. LORTAB [Concomitant]
     Dates: start: 20080201
  12. MARINOL [Concomitant]
     Dates: start: 20080619
  13. METOPROLOL TARTRATE [Concomitant]
     Dates: start: 20060630
  14. ONDANSETRON [Concomitant]
     Dates: start: 20080604
  15. ZOLOFT [Concomitant]
  16. OMEPRAZOLE [Concomitant]
     Dates: start: 20060630

REACTIONS (4)
  - DUODENAL ULCER PERFORATION [None]
  - NAUSEA [None]
  - PANCYTOPENIA [None]
  - VOMITING [None]
